APPROVED DRUG PRODUCT: ZOLEDRONIC ACID
Active Ingredient: ZOLEDRONIC ACID
Strength: EQ 4MG BASE/100ML
Dosage Form/Route: INJECTABLE;INTRAVENOUS
Application: A204344 | Product #001
Applicant: DR REDDYS LABORATORIES LTD
Approved: Nov 19, 2018 | RLD: No | RS: No | Type: DISCN